FAERS Safety Report 6409984-3 (Version None)
Quarter: 2009Q4

REPORT INFORMATION
  Report Type: 
  Country: None (occurrence: None)
  Receive Date: 20091022
  Receipt Date: 20090904
  Transmission Date: 20100525
  Serious: No
  Sender: FDA-Public Use
  Company Number: US-BAYER-200932454NA

PATIENT
  Sex: Female

DRUGS (2)
  1. YAZ [Suspect]
     Indication: CONTRACEPTION
     Route: 048
     Dates: start: 20080101, end: 20090901
  2. YASMIN [Suspect]
     Indication: CONTRACEPTION
     Route: 048

REACTIONS (6)
  - ABDOMINAL PAIN [None]
  - ACNE [None]
  - CERVICITIS [None]
  - MENORRHAGIA [None]
  - VAGINAL INFECTION [None]
  - VULVOVAGINAL MYCOTIC INFECTION [None]
